FAERS Safety Report 7977421-3 (Version None)
Quarter: 2011Q4

REPORT INFORMATION
  Report Type: 
  Country: None (occurrence: None)
  Receive Date: 20111213
  Receipt Date: 20111116
  Transmission Date: 20120403
  Serious: No
  Sender: FDA-Public Use
  Company Number: US-AMGEN-USASP2011047333

PATIENT
  Age: 69 Year
  Sex: Female

DRUGS (3)
  1. HUMIRA [Concomitant]
  2. ENBREL [Suspect]
     Indication: PSORIATIC ARTHROPATHY
     Dosage: 50 MG, QWK
     Dates: start: 20030301
  3. ENBREL [Suspect]
     Dosage: 50 MG, QWK

REACTIONS (3)
  - RASH [None]
  - THERAPEUTIC RESPONSE DECREASED [None]
  - PSORIASIS [None]
